FAERS Safety Report 6556420-2 (Version None)
Quarter: 2010Q1

REPORT INFORMATION
  Report Type: 
  Country: None (occurrence: None)
  Receive Date: 20100128
  Receipt Date: 20100121
  Transmission Date: 20100710
  Serious: Yes (Other)
  Sender: FDA-Public Use
  Company Number: B0598409A

PATIENT
  Sex: Female
  Weight: 91.7 kg

DRUGS (1)
  1. ESKAZOLE [Suspect]
     Indication: HEPATIC ECHINOCOCCIASIS
     Route: 065
     Dates: start: 20090820

REACTIONS (4)
  - ACUTE HEPATIC FAILURE [None]
  - ALOPECIA [None]
  - BILE DUCT OBSTRUCTION [None]
  - ULTRASOUND SCAN ABNORMAL [None]
